FAERS Safety Report 7589466-6 (Version None)
Quarter: 2011Q3

REPORT INFORMATION
  Report Type: 
  Country: None (occurrence: None)
  Receive Date: 20110705
  Receipt Date: 20110622
  Transmission Date: 20111222
  Serious: Yes (Other)
  Sender: FDA-Public Use
  Company Number: US-ROCHE-776147

PATIENT
  Sex: Female
  Weight: 51.3 kg

DRUGS (3)
  1. DOXIL [Concomitant]
     Dosage: SHE RECEIVED SIX TREATMENT OF AVASTIN AND DOXIL ON 21 DAY CYCLE
     Dates: start: 20100901
  2. AVASTIN [Suspect]
     Indication: OVARIAN CANCER
     Dosage: SHE RECEIVED SIX TREATMENT OF AVASTIN AND DOXIL ON 21 DAY CYCLE
     Route: 042
     Dates: start: 20100916
  3. AVASTIN [Suspect]
     Dosage: FREQUENCY: EVERY 2 WEEK.
     Route: 042
     Dates: start: 20110324

REACTIONS (3)
  - NEOPLASM MALIGNANT [None]
  - BLOOD CREATININE INCREASED [None]
  - BLOOD UREA INCREASED [None]
